FAERS Safety Report 9704378 (Version 2)
Quarter: 2013Q4

REPORT INFORMATION
  Report Type: Spontaneous
  Country: DZ (occurrence: DZ)
  Receive Date: 20131122
  Receipt Date: 20131122
  Transmission Date: 20140711
  Serious: Yes (Other)
  Sender: FDA-Public Use
  Company Number: DZ-NOVOPROD-392899

PATIENT
  Age: 22 Year
  Sex: Female
  Weight: 30 kg

DRUGS (2)
  1. NORDITROPIN [Suspect]
     Indication: BODY HEIGHT BELOW NORMAL
     Dosage: 1.03 MG, QD
  2. OESTROGEL [Suspect]
     Indication: HYPOGONADISM
     Dosage: 1/4X1.5 MG/QD
     Route: 062

REACTIONS (1)
  - Craniopharyngioma [Unknown]
